FAERS Safety Report 18599291 (Version 1)
Quarter: 2020Q4

REPORT INFORMATION
  Report Type: Spontaneous
  Country: DE (occurrence: DE)
  Receive Date: 20201210
  Receipt Date: 20201210
  Transmission Date: 20210114
  Serious: Yes (Other)
  Sender: FDA-Public Use
  Company Number: DE-SAMSUNG BIOEPIS-SB-2020-36047

PATIENT
  Age: 1 Day
  Sex: Female
  Weight: 2.16 kg

DRUGS (4)
  1. MINPROSTIN E2 [Concomitant]
     Active Substance: DINOPROSTONE
     Indication: LABOUR INDUCTION
     Dosage: 3 MG/D
     Route: 064
  2. IMRALDI [Suspect]
     Active Substance: ADALIMUMAB
     Indication: COLITIS ULCERATIVE
     Dosage: 40 MG/1 WK (BIS 2 WK)
     Route: 064
  3. PREDNISOLON [Suspect]
     Active Substance: PREDNISOLONE
     Indication: COLITIS ULCERATIVE
     Dosage: 10 MG/D (BIS 8)/THE PATIENT ADJUSTS HER DAILY DOSE ACCORDING TO HER ILLNESS.
     Route: 064
     Dates: start: 20191020, end: 20200705
  4. MEZAVANT [Suspect]
     Active Substance: MESALAMINE
     Indication: COLITIS ULCERATIVE
     Dosage: 2400 MG/D (2400-0-0)
     Route: 064
     Dates: start: 20191020, end: 20200705

REACTIONS (5)
  - Bacterial infection [Recovered/Resolved]
  - Poor weight gain neonatal [Unknown]
  - Foetal exposure during pregnancy [Unknown]
  - Congenital naevus [Unknown]
  - Small for dates baby [Unknown]

NARRATIVE: CASE EVENT DATE: 20200705
